FAERS Safety Report 10470442 (Version 7)
Quarter: 2015Q3

REPORT INFORMATION
  Report Type: Spontaneous
  Country: US (occurrence: US)
  Receive Date: 20140923
  Receipt Date: 20150731
  Transmission Date: 20151125
  Serious: Yes (Hospitalization, Other)
  Sender: FDA-Public Use
  Company Number: US-009507513-1409USA010753

PATIENT
  Sex: Male
  Weight: 102.95 kg

DRUGS (2)
  1. JANUVIA [Suspect]
     Active Substance: SITAGLIPTIN PHOSPHATE
     Dosage: 50 MG, UNK
     Route: 048
     Dates: start: 20101028, end: 20101201
  2. JANUVIA [Suspect]
     Active Substance: SITAGLIPTIN PHOSPHATE
     Indication: TYPE 2 DIABETES MELLITUS
     Dosage: 100 MG, QD
     Route: 048
     Dates: start: 2010, end: 20110503

REACTIONS (24)
  - Gastrointestinal ulcer [Not Recovered/Not Resolved]
  - Musculoskeletal pain [Unknown]
  - Incision site erythema [Recovering/Resolving]
  - Hepatic cyst [Unknown]
  - Diverticulum intestinal [Unknown]
  - Bile duct stent insertion [Unknown]
  - Hypertension [Unknown]
  - Pancreaticoduodenectomy [Unknown]
  - Postoperative respiratory failure [Recovered/Resolved]
  - Snoring [Unknown]
  - Hepatic steatosis [Unknown]
  - Arthralgia [Not Recovered/Not Resolved]
  - Arteriosclerosis coronary artery [Unknown]
  - Gastrooesophageal reflux disease [Not Recovered/Not Resolved]
  - Vitamin B12 deficiency [Unknown]
  - Adenocarcinoma pancreas [Unknown]
  - Pancreatitis [Unknown]
  - Wound secretion [Recovering/Resolving]
  - Renal cyst [Unknown]
  - Nephrolithiasis [Unknown]
  - Hyperlipidaemia [Unknown]
  - Aortic calcification [Unknown]
  - Rhonchi [Unknown]
  - Anaemia [Not Recovered/Not Resolved]

NARRATIVE: CASE EVENT DATE: 2010
